FAERS Safety Report 5426556-8 (Version None)
Quarter: 2007Q3

REPORT INFORMATION
  Report Type: 
  Country: None (occurrence: None)
  Receive Date: 20070731
  Receipt Date: 20070608
  Transmission Date: 20080115
  Serious: No
  Sender: FDA-Public Use
  Company Number: 2006PV020656

PATIENT
  Age: 44 Year
  Sex: Male
  Weight: 131.5 kg

DRUGS (5)
  1. EXENATIDE(EXENATIDE) PEN,DISPOSABLE [Suspect]
     Indication: TYPE 2 DIABETES MELLITUS
     Dosage: 10 UG, 2/D, SUBCUTANEOUS 5 UG, 2/D, SUBCUTANEOUS
     Route: 058
     Dates: start: 20060819, end: 20060826
  2. EXENATIDE(EXENATIDE) PEN,DISPOSABLE [Suspect]
     Indication: TYPE 2 DIABETES MELLITUS
     Dosage: 10 UG, 2/D, SUBCUTANEOUS 5 UG, 2/D, SUBCUTANEOUS
     Route: 058
     Dates: start: 20060827
  3. METFORMIN HCL [Concomitant]
  4. GLYBURIDE [Concomitant]
  5. LANTUS [Concomitant]

REACTIONS (2)
  - BLOOD GLUCOSE ABNORMAL [None]
  - DRUG INEFFECTIVE [None]
